FAERS Safety Report 4298622-4 (Version None)
Quarter: 2004Q1

REPORT INFORMATION
  Report Type: 
  Country: None (occurrence: None)
  Receive Date: 20040218
  Receipt Date: 20030618
  Transmission Date: 20041129
  Serious: No
  Sender: FDA-Public Use
  Company Number: US-GLAXOSMITHKLINE-A0414054A

PATIENT
  Age: 42 Year
  Sex: Female
  Weight: 54.5 kg

DRUGS (1)
  1. PAXIL [Suspect]
     Dosage: 30MG UNKNOWN
     Route: 048
     Dates: start: 20020101, end: 20030601

REACTIONS (5)
  - ABDOMINAL PAIN UPPER [None]
  - DIARRHOEA [None]
  - HEADACHE [None]
  - NAUSEA [None]
  - VERTIGO [None]
